FAERS Safety Report 21486145 (Version 3)
Quarter: 2022Q4

REPORT INFORMATION
  Report Type: Spontaneous
  Country: US (occurrence: US)
  Receive Date: 20221020
  Receipt Date: 20221101
  Transmission Date: 20230113
  Serious: Yes (Other)
  Sender: FDA-Public Use
  Company Number: US-PFIZER INC-PV202200085830

PATIENT
  Age: 63 Year
  Sex: Male

DRUGS (5)
  1. BORTEZOMIB [Suspect]
     Active Substance: BORTEZOMIB
     Dosage: UNK
  2. CYCLOPHOSPHAMIDE [Suspect]
     Active Substance: CYCLOPHOSPHAMIDE
     Dosage: UNK
  3. DEXAMETHASONE [Suspect]
     Active Substance: DEXAMETHASONE
     Dosage: UNK
  4. BLENREP [Concomitant]
     Active Substance: BELANTAMAB MAFODOTIN-BLMF
     Dosage: UNK
  5. POMALIDOMIDE [Concomitant]
     Active Substance: POMALIDOMIDE
     Dosage: UNK

REACTIONS (4)
  - Keratopathy [Unknown]
  - Neuropathy peripheral [Unknown]
  - Bone pain [Unknown]
  - Neoplasm progression [Unknown]
